FAERS Safety Report 6691931-0 (Version None)
Quarter: 2010Q2

REPORT INFORMATION
  Report Type: 
  Country: None (occurrence: None)
  Receive Date: 20100422
  Receipt Date: 20090625
  Transmission Date: 20101027
  Serious: No
  Sender: FDA-Public Use
  Company Number: US-ASTRAZENECA-2009UW17444

PATIENT
  Age: 87 Year
  Sex: Female

DRUGS (2)
  1. METOPROLOL SUCCINATE [Suspect]
     Route: 048
     Dates: start: 20070101, end: 20090101
  2. METOPROLOL SUCCINATE [Suspect]
     Route: 048
     Dates: start: 20090101

REACTIONS (6)
  - BLOOD PRESSURE FLUCTUATION [None]
  - FATIGUE [None]
  - HEART RATE DECREASED [None]
  - ILL-DEFINED DISORDER [None]
  - INSOMNIA [None]
  - PRURITUS [None]
